FAERS Safety Report 24891514 (Version 3)
Quarter: 2025Q2

REPORT INFORMATION
  Report Type: Spontaneous
  Country: US (occurrence: US)
  Receive Date: 20250127
  Receipt Date: 20250429
  Transmission Date: 20250716
  Serious: Yes (Other)
  Sender: BRISTOL-MYERS SQUIBB COMPANY
  Company Number: US-BRISTOL-MYERS SQUIBB COMPANY-2025-012288

PATIENT
  Age: 63 Year
  Sex: Female

DRUGS (3)
  1. POMALYST [Suspect]
     Active Substance: POMALIDOMIDE
     Indication: Plasma cell myeloma
     Route: 048
  2. POMALYST [Suspect]
     Active Substance: POMALIDOMIDE
     Dosage: TAKE 1 CAPSULE BY MOUTH ON AN EMTPY STOMACH W/ WATER EVERY DAY ON DAYS 1-21 OF A 28 DAY CYCLE DON^T
     Route: 048
  3. POMALYST [Suspect]
     Active Substance: POMALIDOMIDE
     Dosage: TAKE 1CAPSULE BY MOUTH WITH WATER EVERY DAY ON DAYS 1-21 OF A 28 DAY CYCLE. DO NOT BREAK, CHEW, OR O
     Route: 048

REACTIONS (3)
  - Laboratory test abnormal [Recovering/Resolving]
  - Hallucination [Recovering/Resolving]
  - Plasma cell myeloma [Recovered/Resolved]
